FAERS Safety Report 25130435 (Version 2)
Quarter: 2025Q3

REPORT INFORMATION
  Report Type: Spontaneous
  Country: EU (occurrence: EU)
  Receive Date: 20250327
  Receipt Date: 20250809
  Transmission Date: 20251021
  Serious: Yes (Hospitalization, Other)
  Sender: ALEXION PHARMACEUTICALS
  Company Number: EU-AstraZeneca-CH-00833012A

PATIENT
  Sex: Female

DRUGS (1)
  1. ACALABRUTINIB [Suspect]
     Active Substance: ACALABRUTINIB
     Indication: Chronic lymphocytic leukaemia

REACTIONS (5)
  - Infection [Recovered/Resolved]
  - Cardiac failure [Recovered/Resolved]
  - Haematoma [Recovered/Resolved]
  - Atrial fibrillation [Recovered/Resolved]
  - Anaemia [Recovered/Resolved]
